FAERS Safety Report 16940934 (Version 5)
Quarter: 2021Q3

REPORT INFORMATION
  Report Type: Report from Study
  Country: GB (occurrence: GB)
  Receive Date: 20191021
  Receipt Date: 20210825
  Transmission Date: 20211014
  Serious: Yes (Death, Hospitalization, Other)
  Sender: FDA-Public Use
  Company Number: GB-MYLANLABS-2019M1098139

PATIENT
  Age: 44 Year
  Sex: Female

DRUGS (68)
  1. PERTUZUMAB. [Suspect]
     Active Substance: PERTUZUMAB
     Indication: BREAST CANCER METASTATIC
     Dosage: 420 MILLIGRAM, Q3W
     Route: 042
     Dates: start: 20161117, end: 20181122
  2. DEXAMETHASONE. [Concomitant]
     Active Substance: DEXAMETHASONE
     Dosage: 0.5 MILLIGRAM, QD
     Route: 048
     Dates: start: 20180308, end: 20180419
  3. BUPRENORPHINE. [Concomitant]
     Active Substance: BUPRENORPHINE
     Indication: PAIN
     Dosage: 1 DOSAGE FORM, QW
     Route: 062
     Dates: start: 20181023, end: 20181212
  4. NAPROXEN SODIUM. [Concomitant]
     Active Substance: NAPROXEN SODIUM
     Indication: BACK PAIN
     Dosage: 1000 MILLIGRAM, QD
     Route: 048
     Dates: start: 20170922, end: 20190326
  5. BISACODYL. [Concomitant]
     Active Substance: BISACODYL
     Indication: CONSTIPATION
     Dosage: 10 MILLIGRAM, QD
     Route: 048
     Dates: start: 20171009, end: 20190326
  6. GABAPENTIN. [Concomitant]
     Active Substance: GABAPENTIN
     Indication: PAIN
     Dosage: 900 MILLIGRAM, QD
     Route: 048
     Dates: start: 20171116, end: 20180621
  7. DALTEPARIN [Concomitant]
     Active Substance: DALTEPARIN
     Indication: DEEP VEIN THROMBOSIS
     Dosage: 18000 INTERNATIONAL UNIT, QD
     Route: 058
     Dates: start: 20170418, end: 20180510
  8. METOCLOPRAMIDE. [Concomitant]
     Active Substance: METOCLOPRAMIDE
     Dosage: UNK
     Route: 042
     Dates: start: 20161117, end: 20161117
  9. FLUCONAZOLE. [Concomitant]
     Active Substance: FLUCONAZOLE
     Indication: PRODUCT USED FOR UNKNOWN INDICATION
     Dosage: 50 MILLIGRAM, QD
     Dates: start: 20201207, end: 20201214
  10. TRASTUZUMAB. [Suspect]
     Active Substance: TRASTUZUMAB
     Indication: BREAST CANCER METASTATIC
     Dosage: 600 MILLIGRAM, Q3W
     Route: 041
     Dates: start: 20161117, end: 20181122
  11. DEXAMETHASONE. [Concomitant]
     Active Substance: DEXAMETHASONE
     Dosage: 06 MILLIGRAM, QD
     Route: 048
     Dates: start: 20181206, end: 20181207
  12. PARACETAMOL [Concomitant]
     Active Substance: ACETAMINOPHEN
     Indication: SWELLING FACE
     Dosage: 500 MILLIGRAM, PRN
     Route: 048
     Dates: start: 20170122, end: 20190326
  13. FILGRASTIM [Concomitant]
     Active Substance: FILGRASTIM
     Indication: PRODUCT USED FOR UNKNOWN INDICATION
     Dosage: 480 MICROGRAM
     Route: 058
     Dates: start: 20161118, end: 20161121
  14. PERTUZUMAB. [Suspect]
     Active Substance: PERTUZUMAB
     Dosage: PLANNED NUMBER OF CYCLES COMPLETED
     Route: 042
     Dates: start: 20161020, end: 20161020
  15. DEXAMETHASONE. [Concomitant]
     Active Substance: DEXAMETHASONE
     Dosage: 2 MILLIGRAM, QD
     Route: 048
     Dates: start: 20170308, end: 20170831
  16. MACROGOL [Concomitant]
     Active Substance: POLYETHYLENE GLYCOLS
     Indication: CONSTIPATION
     Dosage: 2 ORAL
     Route: 065
     Dates: start: 20170922, end: 20190326
  17. FRUSEMIDE                          /00032601/ [Concomitant]
     Active Substance: FUROSEMIDE
     Indication: OEDEMA PERIPHERAL
     Dosage: 20 MG
     Route: 048
     Dates: start: 20170501, end: 20190326
  18. LACTULOSE. [Concomitant]
     Active Substance: LACTULOSE
     Indication: CONSTIPATION
     Dosage: 10 MILLILITER, PRN
     Route: 048
     Dates: start: 20180830
  19. FLUCLOXACILLIN [Concomitant]
     Active Substance: FLUCLOXACILLIN
     Indication: PRODUCT USED FOR UNKNOWN INDICATION
     Dosage: 500 MILLIGRAM  0.25 DAY
     Route: 048
     Dates: start: 20170406, end: 20170413
  20. CO?AMOXICLAV                       /00756801/ [Concomitant]
     Active Substance: AMOXICILLIN\CLAVULANIC ACID
     Dosage: 1500 MILLIGRAM, QD
     Route: 048
     Dates: start: 20161207
  21. DEXAMETHASONE. [Concomitant]
     Active Substance: DEXAMETHASONE
     Indication: VISUAL IMPAIRMENT
     Dosage: 14 MILLIGRAM, QD
     Route: 048
     Dates: start: 20190124, end: 20190326
  22. DEXAMETHASONE. [Concomitant]
     Active Substance: DEXAMETHASONE
     Dosage: 2 MILLIGRAM, QD
     Route: 048
     Dates: start: 20170308, end: 20170831
  23. DEXAMETHASONE. [Concomitant]
     Active Substance: DEXAMETHASONE
     Dosage: 0.25 MICROGRAM, QD
     Route: 048
     Dates: start: 20180419, end: 20180510
  24. DEXAMETHASONE. [Concomitant]
     Active Substance: DEXAMETHASONE
     Dosage: 8 MILLIGRAM, QD
     Route: 048
     Dates: start: 20161116, end: 20161119
  25. DEXAMETHASONE. [Concomitant]
     Active Substance: DEXAMETHASONE
     Dosage: 0.25 MICROGRAM, QD
     Route: 048
     Dates: start: 20180621, end: 20190326
  26. RAMIPRIL. [Concomitant]
     Active Substance: RAMIPRIL
     Indication: LEFT VENTRICULAR DYSFUNCTION
     Dosage: 1.25 MILLIGRAM, QD
     Route: 048
     Dates: start: 20170608, end: 20190326
  27. FRUSEMIDE                          /00032601/ [Concomitant]
     Active Substance: FUROSEMIDE
     Indication: JOINT SWELLING
     Dosage: 20 MILLIGRAM, PRN
     Route: 048
     Dates: start: 20170308, end: 20190326
  28. TINZAPARIN [Concomitant]
     Active Substance: TINZAPARIN
     Dosage: 4500 UNIT
     Route: 058
     Dates: start: 20181205, end: 20181212
  29. OXYCODONE [Concomitant]
     Active Substance: OXYCODONE
     Dosage: 40 MILLIGRAM, QD
     Route: 048
     Dates: start: 20171012, end: 20171101
  30. OXYCODONE [Concomitant]
     Active Substance: OXYCODONE
     Dosage: 180 MILLIGRAM, QD
     Route: 048
     Dates: start: 20171130, end: 20190326
  31. IBUPROFEN. [Concomitant]
     Active Substance: IBUPROFEN
     Indication: PAIN
     Dosage: 600 MILLIGRAM, QD
     Route: 048
     Dates: start: 20180308, end: 20180621
  32. TRASTUZUMAB. [Suspect]
     Active Substance: TRASTUZUMAB
     Dosage: PLANNED NUMBER OF CYCLES COMPLETED
     Route: 042
     Dates: start: 20161020, end: 20161020
  33. TRASTUZUMAB. [Suspect]
     Active Substance: TRASTUZUMAB
     Dosage: 300 MILLIGRAM
     Route: 042
     Dates: start: 20181214
  34. DEXAMETHASONE. [Concomitant]
     Active Substance: DEXAMETHASONE
     Dosage: 4 MILLIGRAM, QD
     Route: 048
     Dates: start: 20170126, end: 20170308
  35. DEXAMETHASONE. [Concomitant]
     Active Substance: DEXAMETHASONE
     Dosage: 12 MILLIGRAM, QD
     Route: 048
     Dates: start: 20181214, end: 20190124
  36. MACROGOL [Concomitant]
     Active Substance: POLYETHYLENE GLYCOLS
     Dosage: UNK
  37. OXYCODONE [Concomitant]
     Active Substance: OXYCODONE
     Indication: BACK PAIN
     Dosage: 40 MILLIGRAM, QD
     Route: 048
     Dates: start: 20171101, end: 20171130
  38. ONDASETRON                         /00955301/ [Concomitant]
     Active Substance: ONDANSETRON
     Indication: NAUSEA
     Dosage: 4 MILLIGRAM, PRN
     Route: 048
     Dates: start: 20170510
  39. LEVETIRACETAM. [Concomitant]
     Active Substance: LEVETIRACETAM
     Dosage: 1000 MILLIGRAM, QD
     Route: 048
     Dates: start: 20190103, end: 20190326
  40. OXYCONTIN [Concomitant]
     Active Substance: OXYCODONE HYDROCHLORIDE
     Indication: PAIN
     Dosage: 2 DOSAGE FORM, BID (0.5 DAY)
     Route: 048
     Dates: start: 20171116, end: 20180621
  41. CO?AMOXICLAV                       /00756801/ [Concomitant]
     Active Substance: AMOXICILLIN\CLAVULANIC ACID
     Indication: LOWER RESPIRATORY TRACT INFECTION
     Dosage: 500 MILLIGRAM, QD
     Route: 048
     Dates: start: 20161207
  42. HYDROCORTISONE. [Concomitant]
     Active Substance: HYDROCORTISONE
     Dosage: 50 MILLIGRAM
     Route: 042
     Dates: start: 20170122, end: 20170122
  43. CO?AMOXICLAV                       /00756801/ [Concomitant]
     Active Substance: AMOXICILLIN\CLAVULANIC ACID
     Indication: LOWER RESPIRATORY TRACT INFECTION
     Dosage: 3.6 GRAM, QD
     Route: 042
     Dates: start: 20170122, end: 20170122
  44. DEXAMETHASONE. [Concomitant]
     Active Substance: DEXAMETHASONE
     Dosage: 8 MILLIGRAM, QD
     Route: 048
     Dates: start: 20181208, end: 20181213
  45. DEXAMETHASONE. [Concomitant]
     Active Substance: DEXAMETHASONE
     Dosage: 8 MILLIGRAM, BID
     Route: 048
     Dates: start: 20181206, end: 20181207
  46. BUPRENORPHINE. [Concomitant]
     Active Substance: BUPRENORPHINE
     Dosage: 10 MICROGRAM, QW
     Route: 062
     Dates: start: 20181212, end: 20190326
  47. FRUSEMIDE                          /00032601/ [Concomitant]
     Active Substance: FUROSEMIDE
     Indication: PERIPHERAL SWELLING
     Dosage: 20 MILLIGRAM, PRN
     Route: 048
     Dates: start: 20170510, end: 20190326
  48. MORPHINE SULPHATE [Concomitant]
     Active Substance: MORPHINE SULFATE
     Indication: BACK PAIN
     Dosage: SOLUTION
     Route: 048
     Dates: start: 20170922, end: 20190326
  49. MOVICOL [Concomitant]
     Active Substance: POLYETHYLENE GLYCOL 3350\POTASSIUM CHLORIDE\SODIUM BICARBONATE\SODIUM CHLORIDE
     Indication: CONSTIPATION
     Dosage: 1 OTHER
     Route: 048
     Dates: start: 20190326
  50. CHLORPHENAMINE [Concomitant]
     Active Substance: CHLORPHENIRAMINE MALEATE
     Indication: PRODUCT USED FOR UNKNOWN INDICATION
     Dosage: 10 MILLIGRAM
     Route: 042
     Dates: start: 20161117, end: 20161117
  51. HYDROCORTISONE. [Concomitant]
     Active Substance: HYDROCORTISONE
     Indication: PRODUCT USED FOR UNKNOWN INDICATION
     Dosage: 100 MILLIGRAM
     Route: 042
     Dates: start: 20161117, end: 20161117
  52. DEXAMETHASONE. [Concomitant]
     Active Substance: DEXAMETHASONE
     Dosage: 6 MILLIGRAM, QD
     Route: 048
     Dates: start: 20190125
  53. DEXAMETHASONE. [Concomitant]
     Active Substance: DEXAMETHASONE
     Dosage: 01 MILLIGRAM, QD
     Route: 048
     Dates: start: 20170831, end: 20180308
  54. LANSOPRAZOLE. [Concomitant]
     Active Substance: LANSOPRAZOLE
     Indication: PRODUCT USED FOR UNKNOWN INDICATION
     Dosage: 30 MILLIGRAM, QD
     Route: 048
     Dates: start: 20190326
  55. SENNA                              /00142201/ [Concomitant]
     Active Substance: SENNA LEAF
     Indication: CONSTIPATION
     Dosage: 15 MILLIGRAM, QD
     Route: 048
     Dates: start: 20170922, end: 20180404
  56. LEVETIRACETAM. [Concomitant]
     Active Substance: LEVETIRACETAM
     Indication: SEIZURE
     Dosage: 250 MILLIGRAM, BID
     Route: 048
     Dates: start: 20181213, end: 20190103
  57. METOCLOPRAMIDE. [Concomitant]
     Active Substance: METOCLOPRAMIDE
     Dosage: 10 MILLIGRAM, PRN
     Route: 048
     Dates: start: 20170510, end: 20190326
  58. AMOXICILLIN. [Concomitant]
     Active Substance: AMOXICILLIN
     Indication: RHINITIS
     Dosage: 500 MILLIGRAM
     Route: 048
     Dates: start: 20181205, end: 20181205
  59. CO?AMOXICLAV                       /00756801/ [Concomitant]
     Active Substance: AMOXICILLIN\CLAVULANIC ACID
     Dosage: 500 MILLIGRAM, QD
     Route: 048
     Dates: start: 20200125, end: 20200130
  60. DOCETAXEL. [Suspect]
     Active Substance: DOCETAXEL
     Indication: BREAST CANCER METASTATIC
     Dosage: LAST DOSE RECEIVED ON 21/MAR/2017 6 CYCLES
     Route: 042
     Dates: start: 20161117, end: 20170321
  61. DEXAMETHASONE. [Concomitant]
     Active Substance: DEXAMETHASONE
     Indication: SEIZURE
     Dosage: 0.25 MICROGRAM, QD
     Route: 048
     Dates: start: 20190121, end: 20190326
  62. DEXAMETHASONE. [Concomitant]
     Active Substance: DEXAMETHASONE
     Dosage: 06 MILLIGRAM, QD
     Route: 048
     Dates: start: 20181205, end: 20181205
  63. DEXAMETHASONE. [Concomitant]
     Active Substance: DEXAMETHASONE
     Dosage: 6 MILLIGRAM, QD
     Route: 048
     Dates: start: 20170125
  64. LAXIDO [Concomitant]
     Active Substance: POLYETHYLENE GLYCOL 3350\POTASSIUM CHLORIDE\SODIUM BICARBONATE\SODIUM CHLORIDE
     Indication: CONSTIPATION
     Dosage: 2 OTHER
     Route: 048
     Dates: start: 20171009, end: 20190326
  65. DICLOFENAC [Concomitant]
     Active Substance: DICLOFENAC
     Indication: PRODUCT USED FOR UNKNOWN INDICATION
     Dosage: 1 GTT DROPS, PRN
     Route: 061
     Dates: start: 20181023, end: 20190326
  66. CANDESTAN [Concomitant]
     Indication: CANDIDA INFECTION
     Dosage: 100 MILLIGRAM
     Route: 067
     Dates: start: 20180419, end: 20180419
  67. ORAMORPH [Concomitant]
     Active Substance: MORPHINE SULFATE
     Indication: PAIN
     Dosage: 5 MILLIGRAM, PRN
     Route: 048
     Dates: start: 20180830, end: 20190326
  68. CANESTEN [Concomitant]
     Active Substance: CLOTRIMAZOLE
     Indication: CANDIDA INFECTION
     Dosage: 100 MILLIGRAM
     Route: 067
     Dates: start: 20180419, end: 20180419

REACTIONS (10)
  - Disease progression [Fatal]
  - Spinal compression fracture [Recovered/Resolved]
  - Joint swelling [Not Recovered/Not Resolved]
  - Ejection fraction decreased [Recovered/Resolved]
  - Constipation [Recovering/Resolving]
  - Vertebroplasty [Recovered/Resolved]
  - Back pain [Not Recovered/Not Resolved]
  - Deep vein thrombosis [Recovered/Resolved]
  - Peripheral swelling [Not Recovered/Not Resolved]
  - Swelling face [Recovered/Resolved]

NARRATIVE: CASE EVENT DATE: 20170122
